FAERS Safety Report 16215126 (Version 1)
Quarter: 2019Q2

REPORT INFORMATION
  Report Type: Spontaneous
  Country: US (occurrence: US)
  Receive Date: 20190418
  Receipt Date: 20190418
  Transmission Date: 20190711
  Serious: Yes (Disabling)
  Sender: FDA-Public Use
  Company Number: None

PATIENT
  Age: 62 Year
  Sex: Female
  Weight: 56.7 kg

DRUGS (1)
  1. PEG-3350 AND ELECTROLYTES [Suspect]
     Active Substance: POLYETHYLENE GLYCOL 3350\POTASSIUM CHLORIDE\SODIUM BICARBONATE\SODIUM CHLORIDE\SODIUM SULFATE\SODIUM SULFATE ANHYDROUS
     Indication: BOWEL PREPARATION
     Dosage: ?          QUANTITY:8 OUNCE(S);OTHER FREQUENCY:EVERY 15 MINUTES;?
     Route: 048
     Dates: start: 20190411, end: 20190412

REACTIONS (11)
  - Asthenia [None]
  - Abdominal pain upper [None]
  - Discomfort [None]
  - Dehydration [None]
  - Hypotension [None]
  - Tremor [None]
  - Nausea [None]
  - Weight decreased [None]
  - Chills [None]
  - Headache [None]
  - Vomiting [None]

NARRATIVE: CASE EVENT DATE: 20190411
